FAERS Safety Report 5201348-3 (Version None)
Quarter: 2006Q4

REPORT INFORMATION
  Report Type: 
  Country: None (occurrence: None)
  Receive Date: 20061016
  Receipt Date: 20020220
  Transmission Date: 20070319
  Serious: Yes (Hospitalization)
  Sender: FDA-Public Use
  Company Number: PHEH2002US01957

PATIENT
  Age: 70 Year
  Sex: Female

DRUGS (5)
  1. MIACALCIN [Suspect]
     Indication: OSTEOPOROSIS
     Dosage: INTRANASAL
     Dates: start: 20010801
  2. PREMARIN [Concomitant]
  3. PRAVACHOL [Concomitant]
  4. NORVASC [Concomitant]
  5. ISOSORBIDE MONONITRATE [Concomitant]

REACTIONS (3)
  - DIZZINESS [None]
  - INNER EAR DISORDER [None]
  - SINUS DISORDER [None]
